FAERS Safety Report 4277030-6 (Version None)
Quarter: 2004Q1

REPORT INFORMATION
  Report Type: 
  Country: None (occurrence: None)
  Receive Date: 20040116
  Receipt Date: 20040107
  Transmission Date: 20041129
  Serious: Yes (Hospitalization)
  Sender: FDA-Public Use
  Company Number: B0319064A

PATIENT
  Age: 50 Year
  Sex: Male

DRUGS (3)
  1. RETROVIR [Suspect]
     Indication: HIV INFECTION
  2. EPIVIR [Suspect]
     Indication: HIV INFECTION
  3. DIDANOSINE [Concomitant]

REACTIONS (4)
  - FATIGUE [None]
  - MYCOBACTERIA SPUTUM TEST POSITIVE [None]
  - MYCOBACTERIAL INFECTION [None]
  - WEIGHT DECREASED [None]
